FAERS Safety Report 5042812-X (Version None)
Quarter: 2006Q3

REPORT INFORMATION
  Report Type: 
  Country: None (occurrence: None)
  Receive Date: 20060705
  Receipt Date: 20060530
  Transmission Date: 20061208
  Serious: Yes (Other)
  Sender: FDA-Public Use
  Company Number: JP-ROCHE-450187

PATIENT
  Age: 59 Year
  Sex: Female
  Weight: 47 kg

DRUGS (7)
  1. ROCEPHIN [Suspect]
     Indication: MENINGITIS
     Route: 041
     Dates: start: 20060508, end: 20060508
  2. ROCEPHIN [Suspect]
     Route: 041
     Dates: start: 20060509, end: 20060509
  3. FAMOTIDINE [Concomitant]
     Dosage: ROUTE: INJECTABLE (NOT OTHERWISE SPECIFIED).
     Route: 050
     Dates: start: 20060508, end: 20060508
  4. FAMOTIDINE [Concomitant]
     Route: 048
     Dates: start: 20060509
  5. GLYCEROL 2.6% [Concomitant]
     Dosage: GENERIC REPORTED AS CONCENTRATED GLYCERINE, FRUCTOSE.
     Route: 041
     Dates: start: 20060508, end: 20060509
  6. HUMULIN 70/30 [Concomitant]
     Dosage: GENERIC REPORTED AS INSULIN HUMAN (GENETICAL RECOMBINATION). ROUTE: INJECTABLE (NOT OTHERWISE SPECI+
     Route: 050
     Dates: start: 20060508, end: 20060509
  7. NOVORAPID [Concomitant]
     Dosage: REPORTED DOSING: 8-6-6 BEFORE EACH MEAL.
     Route: 058
     Dates: start: 20060509, end: 20060523

REACTIONS (10)
  - ANTINUCLEAR ANTIBODY POSITIVE [None]
  - AUTOIMMUNE DISORDER [None]
  - DIABETES MELLITUS INADEQUATE CONTROL [None]
  - DISSEMINATED INTRAVASCULAR COAGULATION [None]
  - HEPATIC FUNCTION ABNORMAL [None]
  - INFECTION [None]
  - INFLAMMATION [None]
  - LYMPHOCYTE STIMULATION TEST POSITIVE [None]
  - PANCYTOPENIA [None]
  - RASH [None]
